FAERS Safety Report 9052824 (Version 1)
Quarter: 2013Q1

REPORT INFORMATION
  Report Type: Spontaneous
  Country: FI (occurrence: FI)
  Receive Date: 20130207
  Receipt Date: 20130207
  Transmission Date: 20140127
  Serious: Yes (Death, Hospitalization)
  Sender: FDA-Public Use
  Company Number: FI-B.I. PHARMACEUTICALS,INC./RIDGEFIELD-2013-SW-00080SF

PATIENT
  Age: 78 None
  Sex: Male

DRUGS (4)
  1. PRADAXA [Suspect]
     Indication: ATRIAL FIBRILLATION
     Dosage: 220 MG
     Route: 048
     Dates: start: 20120701, end: 20130110
  2. PRADAXA [Suspect]
     Indication: CARDIOVASCULAR EVENT PROPHYLAXIS
  3. SELOKEN ZOC [Concomitant]
     Dosage: 95 MG
     Route: 048
  4. FURESIS [Concomitant]
     Dosage: 40 MG
     Route: 048

REACTIONS (4)
  - Coagulopathy [Fatal]
  - Renal failure acute [Fatal]
  - Fall [Unknown]
  - Haematoma [Unknown]
